FAERS Safety Report 8118464-9 (Version None)
Quarter: 2012Q1

REPORT INFORMATION
  Report Type: 
  Country: None (occurrence: None)
  Receive Date: 20120207
  Receipt Date: 20120130
  Transmission Date: 20120608
  Serious: Yes (Death)
  Sender: FDA-Public Use
  Company Number: FR-EISAI INC-E3810-05277-SPO-FR

PATIENT
  Sex: Female

DRUGS (10)
  1. BENDAMUSTINE [Suspect]
     Dosage: UNKNOWN
     Route: 042
     Dates: start: 20100105
  2. STABLON [Suspect]
     Route: 048
  3. MABTHERA [Suspect]
     Dosage: UNKNOWN
     Route: 042
     Dates: start: 20050101
  4. FOLIC ACID [Suspect]
     Route: 048
  5. GRANOCYTE [Suspect]
     Route: 030
  6. OMEPRAZOLE [Suspect]
     Route: 048
  7. RABEPRAZOLE SODIUM [Suspect]
     Route: 048
  8. RAMIPRIL [Suspect]
     Route: 048
  9. CORDARONE [Suspect]
     Route: 048
  10. PREVISCAN [Suspect]
     Dosage: ^0.75^ DOSE
     Route: 048

REACTIONS (1)
  - GUILLAIN-BARRE SYNDROME [None]
